FAERS Safety Report 8485017 (Version 3)
Quarter: 2013Q4

REPORT INFORMATION
  Report Type: Spontaneous
  Country: CA (occurrence: CA)
  Receive Date: 20120330
  Receipt Date: 20131028
  Transmission Date: 20140711
  Serious: Yes (Hospitalization)
  Sender: FDA-Public Use
  Company Number: CA-PFIZER INC-2012078418

PATIENT
  Age: 77 Year
  Sex: Male

DRUGS (7)
  1. ALTACE [Suspect]
     Indication: HYPERTENSION
     Dosage: UNK
     Route: 048
     Dates: end: 20120218
  2. MONOCOR [Suspect]
     Indication: HYPERTENSION
     Dosage: UNK
     Route: 048
     Dates: end: 20120218
  3. ACETYLSALICYLIC ACID [Concomitant]
     Dosage: UNK
  4. ROSUVASTATIN [Concomitant]
     Dosage: UNK
  5. TAMSULOSIN HYDROCHLORIDE [Concomitant]
     Dosage: UNK
  6. METFORMIN [Concomitant]
     Dosage: UNK
  7. CLOPIDOGREL [Concomitant]
     Dosage: UNK

REACTIONS (2)
  - Face injury [Recovered/Resolved]
  - Bradycardia [Recovered/Resolved]
